FAERS Safety Report 5586389-9 (Version None)
Quarter: 2008Q1

REPORT INFORMATION
  Report Type: 
  Country: None (occurrence: None)
  Receive Date: 20080110
  Receipt Date: 20080103
  Transmission Date: 20080703
  Serious: No
  Sender: FDA-Public Use
  Company Number: PHHY2007KR00766

PATIENT
  Age: 64 Year
  Sex: Female

DRUGS (3)
  1. DIOVAN [Suspect]
     Indication: HYPERTENSION
     Dosage: 80 MG, UNK
     Route: 048
     Dates: start: 20041011, end: 20050131
  2. CDRT [Concomitant]
     Dosage: 8MG
  3. AMDP [Concomitant]
     Dosage: 5MG

REACTIONS (2)
  - COUGH [None]
  - THROAT IRRITATION [None]
